FAERS Safety Report 11180057 (Version 2)
Quarter: 2015Q3

REPORT INFORMATION
  Report Type: Other
  Country: GB (occurrence: GB)
  Receive Date: 20150611
  Receipt Date: 20150806
  Transmission Date: 20151125
  Serious: Yes (Hospitalization, Other)
  Sender: FDA-Public Use
  Company Number: GB-GLENMARK PHARMACEUTICALS INC, USA.-2015GMK017485

PATIENT

DRUGS (4)
  1. METFORMIN [Suspect]
     Active Substance: METFORMIN HYDROCHLORIDE
     Indication: PRODUCT USED FOR UNKNOWN INDICATION
     Dosage: UNK
  2. LUCENTIS [Suspect]
     Active Substance: RANIBIZUMAB
     Indication: NEOVASCULAR AGE-RELATED MACULAR DEGENERATION
     Dosage: 0.5 MG, PRN
     Route: 031
     Dates: start: 20140204
  3. LUCENTIS [Suspect]
     Active Substance: RANIBIZUMAB
     Dosage: 0.5 MG, PRN
     Route: 031
     Dates: start: 20140401
  4. NOVOMIX [Suspect]
     Active Substance: INSULIN ASPART
     Indication: PRODUCT USED FOR UNKNOWN INDICATION
     Dosage: UNK

REACTIONS (5)
  - Unresponsive to stimuli [Unknown]
  - Syncope [Unknown]
  - Dry eye [Unknown]
  - Hypoglycaemia [Recovered/Resolved]
  - Bradycardia [Unknown]

NARRATIVE: CASE EVENT DATE: 20140709
